FAERS Safety Report 6765095-9 (Version None)
Quarter: 2010Q2

REPORT INFORMATION
  Report Type: 
  Country: None (occurrence: None)
  Receive Date: 20100609
  Receipt Date: 20100609
  Transmission Date: 20101027
  Serious: Yes (Other)
  Sender: FDA-Public Use
  Company Number: None

PATIENT
  Age: 3 Year
  Sex: Female
  Weight: 14.9687 kg

DRUGS (1)
  1. AMOXICILLIN AND CLAVULANATE POTASSIUM [Suspect]
     Indication: SINUSITIS
     Dosage: 3/4 TEASPOON 2'X ADAY
     Dates: start: 20100526, end: 20100529

REACTIONS (4)
  - ABDOMINAL DISCOMFORT [None]
  - CHILLS [None]
  - PYREXIA [None]
  - VOMITING [None]
